FAERS Safety Report 5232662-3 (Version None)
Quarter: 2007Q1

REPORT INFORMATION
  Report Type: 
  Country: None (occurrence: None)
  Receive Date: 20070207
  Receipt Date: 20070126
  Transmission Date: 20070707
  Serious: Yes (Death, Hospitalization)
  Sender: FDA-Public Use
  Company Number: US-KINGPHARMUSA00001-K200700086

PATIENT

DRUGS (2)
  1. ALTACE [Suspect]
     Indication: CARDIAC FAILURE
     Dosage: 2.5 MG, QD
     Route: 048
  2. FUROSEMIDE [Suspect]
     Indication: CARDIAC FAILURE
     Dosage: 20 MG, QD
     Route: 042

REACTIONS (6)
  - AZOTAEMIA [None]
  - DEATH [None]
  - HYPOPROTEINAEMIA [None]
  - HYPOTENSION [None]
  - POLLAKIURIA [None]
  - POLYURIA [None]
